FAERS Safety Report 5105762-6 (Version None)
Quarter: 2006Q3

REPORT INFORMATION
  Report Type: 
  Country: None (occurrence: None)
  Receive Date: 20060915
  Receipt Date: 20041130
  Transmission Date: 20061208
  Serious: Yes (Hospitalization)
  Sender: FDA-Public Use
  Company Number: CA-ROCHE-387527

PATIENT
  Age: 46 Year
  Sex: Male
  Weight: 85 kg

DRUGS (8)
  1. MYCOPHENOLATE MOFETIL [Suspect]
     Route: 048
     Dates: start: 20040827
  2. CYCLOSPORINE [Suspect]
     Route: 048
     Dates: start: 20040827
  3. PREDNISONE TAB [Suspect]
     Dosage: UNKNOWN UNITS
     Route: 048
     Dates: start: 20040828
  4. RISEDRONATE SODIUM [Concomitant]
     Indication: OSTEOPOROSIS
     Route: 048
  5. ACEBUTOLOL [Concomitant]
     Indication: HYPERTENSION
     Route: 048
  6. SEPTRA [Concomitant]
     Indication: INFECTION PROPHYLAXIS
     Route: 048
     Dates: end: 20041129
  7. ENALAPRIL [Concomitant]
     Indication: HYPERTENSION
     Route: 048
  8. CYANOCOBALAMINE [Concomitant]
     Route: 048

REACTIONS (4)
  - HYDRONEPHROSIS [None]
  - LEUKOPENIA [None]
  - LYMPHOCELE [None]
  - URETERIC STENOSIS [None]
